FAERS Safety Report 21700205 (Version 2)
Quarter: 2023Q1

REPORT INFORMATION
  Report Type: Spontaneous
  Country: US (occurrence: US)
  Receive Date: 20221208
  Receipt Date: 20230103
  Transmission Date: 20230417
  Serious: Yes (Hospitalization, Other)
  Sender: FDA-Public Use
  Company Number: US-TEVA-2022-US-2832578

PATIENT
  Age: 67 Year
  Sex: Female

DRUGS (6)
  1. METHYLPREDNISOLONE [Suspect]
     Active Substance: METHYLPREDNISOLONE
     Indication: Myocarditis
     Dosage: 1 GRAM DAILY;
     Route: 042
  2. PREDNISONE [Suspect]
     Active Substance: PREDNISONE
     Indication: Myocarditis
     Route: 065
  3. PEMBROLIZUMAB [Suspect]
     Active Substance: PEMBROLIZUMAB
     Indication: Endometrial cancer recurrent
     Dosage: CYCLICAL, FOR 2 CYCLES
     Route: 065
     Dates: start: 2021
  4. METOPROLOL TARTRATE [Concomitant]
     Active Substance: METOPROLOL TARTRATE
     Indication: Hypertension
     Dosage: 100 MILLIGRAM DAILY;
     Route: 065
  5. LISINOPRIL [Concomitant]
     Active Substance: LISINOPRIL
     Indication: Hypertension
     Dosage: 5 MILLIGRAM DAILY;
     Route: 065
  6. PAROXETINE [Concomitant]
     Active Substance: PAROXETINE
     Indication: Depression
     Dosage: 30 MILLIGRAM DAILY;
     Route: 065

REACTIONS (9)
  - Substance-induced psychotic disorder [Unknown]
  - Myocardial ischaemia [Unknown]
  - Atrioventricular block complete [Unknown]
  - Arrhythmia [Unknown]
  - Dyspnoea exertional [Unknown]
  - Fatigue [Unknown]
  - Presyncope [Unknown]
  - Ventricular tachycardia [Unknown]
  - Myocarditis [Recovered/Resolved]
